FAERS Safety Report 11288760 (Version 1)
Quarter: 2015Q3

REPORT INFORMATION
  Report Type: Spontaneous
  Country: CO (occurrence: CO)
  Receive Date: 20150721
  Receipt Date: 20150721
  Transmission Date: 20151125
  Serious: Yes (Other)
  Sender: FDA-Public Use
  Company Number: CO-JNJFOC-20150714321

PATIENT
  Sex: Female
  Weight: 47 kg

DRUGS (5)
  1. FOLIC ACID. [Concomitant]
     Active Substance: FOLIC ACID
     Dosage: 1 DAY INTERVAL
     Route: 065
     Dates: start: 20140110
  2. PIRIDOXINE [Concomitant]
     Dosage: 1 DAY INTERVAL
     Route: 065
     Dates: start: 20140723
  3. SIMPONI [Suspect]
     Active Substance: GOLIMUMAB
     Indication: ANKYLOSING SPONDYLITIS
     Route: 058
     Dates: start: 20140908
  4. OMEPRAZOLE. [Concomitant]
     Active Substance: OMEPRAZOLE
     Dosage: 12 HR INTERVAL
     Route: 065
     Dates: start: 20140801
  5. ISONIAZIDE [Concomitant]
     Active Substance: ISONIAZID
     Dosage: 1 DAY INTERVAL
     Route: 065
     Dates: start: 20140723

REACTIONS (2)
  - Oral herpes [Recovered/Resolved]
  - Inappropriate schedule of drug administration [Unknown]
